FAERS Safety Report 21669047 (Version 1)
Quarter: 2022Q4

REPORT INFORMATION
  Report Type: Report from Study
  Country: US (occurrence: US)
  Receive Date: 20221201
  Receipt Date: 20221201
  Transmission Date: 20230112
  Serious: Yes (Other)
  Sender: FDA-Public Use
  Company Number: US-ABBVIE-4219690

PATIENT
  Sex: Female

DRUGS (1)
  1. HUMIRA [Suspect]
     Active Substance: ADALIMUMAB
     Indication: Rheumatoid arthritis
     Dosage: FORM STRENGTH: 40MG
     Route: 058

REACTIONS (6)
  - Spinal decompression [Unknown]
  - Injection site bruising [Recovered/Resolved]
  - Intervertebral disc protrusion [Unknown]
  - Back pain [Recovered/Resolved]
  - Osteoarthritis [Recovered/Resolved]
  - Arthritis [Recovered/Resolved]
